FAERS Safety Report 5968266-4 (Version None)
Quarter: 2008Q4

REPORT INFORMATION
  Report Type: 
  Country: None (occurrence: None)
  Receive Date: 20081126
  Receipt Date: 20081124
  Transmission Date: 20090506
  Serious: Yes (Hospitalization)
  Sender: FDA-Public Use
  Company Number: IT-BRISTOL-MYERS SQUIBB COMPANY-14398119

PATIENT
  Age: 47 Year
  Sex: Male

DRUGS (7)
  1. REYATAZ [Suspect]
     Indication: HIV INFECTION
     Route: 048
     Dates: start: 20081002, end: 20081008
  2. REYATAZ [Suspect]
     Indication: HEPATITIS C VIRUS TEST
     Route: 048
     Dates: start: 20081002, end: 20081008
  3. NORVIR [Suspect]
     Indication: HIV INFECTION
     Route: 048
     Dates: start: 20081002, end: 20081008
  4. NORVIR [Suspect]
     Indication: HEPATITIS C VIRUS TEST
     Route: 048
     Dates: start: 20081002, end: 20081008
  5. TRUVADA [Suspect]
     Indication: HIV INFECTION
     Dosage: TRUVADA TABLETS 200MG/245MG
     Route: 048
     Dates: start: 20081002, end: 20081008
  6. TRUVADA [Suspect]
     Indication: HEPATITIS C VIRUS TEST
     Dosage: TRUVADA TABLETS 200MG/245MG
     Route: 048
     Dates: start: 20081002, end: 20081008
  7. URSODIOL [Concomitant]
     Route: 048
     Dates: start: 20051123, end: 20081008

REACTIONS (2)
  - AUTOIMMUNE DISORDER [None]
  - HAEMOLYTIC ANAEMIA [None]
